FAERS Safety Report 15325345 (Version 1)
Quarter: 2018Q3

REPORT INFORMATION
  Report Type: Report from Study
  Country: PR (occurrence: PR)
  Receive Date: 20180828
  Receipt Date: 20180828
  Transmission Date: 20181010
  Serious: Yes (Disabling)
  Sender: FDA-Public Use
  Company Number: PR-BAYER-2018-156174

PATIENT
  Age: 59 Year
  Sex: Male

DRUGS (1)
  1. STIVARGA [Suspect]
     Active Substance: REGORAFENIB
     Indication: HEPATOCELLULAR CARCINOMA
     Dosage: 160 MG DAILY FOR 21 DAYS
     Route: 048
     Dates: start: 20180716, end: 2018

REACTIONS (6)
  - Urticaria [None]
  - Loss of personal independence in daily activities [None]
  - Pain [Recovering/Resolving]
  - Burning sensation [None]
  - Gait inability [None]
  - Hyperkeratosis [None]

NARRATIVE: CASE EVENT DATE: 2018
